FAERS Safety Report 7709459 (Version 5)
Quarter: 2012Q4

REPORT INFORMATION
  Report Type: 
  Country: US (occurrence: US)
  Receive Date: 20101214
  Receipt Date: 20120828
  Transmission Date: 20130627
  Serious: Yes (Hospitalization, Other)
  Sender: FDA-Public Use
  Company Number: US-ELI_LILLY_AND_COMPANY-US201012001141

PATIENT
  Age: 71 Year
  Sex: Male

DRUGS (15)
  1. FORTEO [Suspect]
     Indication: OSTEOPOROSIS
     Dosage: 20 ug, daily (1/D)
     Dates: start: 20101108, end: 20101111
  2. FORTEO [Suspect]
     Dosage: 20 ug, daily (1/D)
     Dates: start: 20101115
  3. FORTEO [Suspect]
     Dosage: UNK
  4. FORTEO [Suspect]
     Dosage: 20 ug, qd
     Dates: start: 201012
  5. FORTEO [Suspect]
     Dosage: 20 ug, qd
  6. CRESTOR [Concomitant]
  7. LISINOPRIL [Concomitant]
     Dosage: UNK, qd
  8. METFORMIN [Concomitant]
     Dosage: UNK, qd
  9. BABY ASPIRIN [Concomitant]
     Dosage: 81 mg, qd
  10. SPIRIVA [Concomitant]
  11. ALBUTEROL [Concomitant]
     Route: 055
  12. PREDNISONE [Concomitant]
     Indication: PRODUCT USED FOR UNKNOWN INDICATION
  13. METOPROLOL [Concomitant]
     Indication: PRODUCT USED FOR UNKNOWN INDICATION
     Dosage: UNK, qd
  14. NITROGLYCERINE [Concomitant]
     Indication: PRODUCT USED FOR UNKNOWN INDICATION
  15. ADVAIR [Concomitant]
     Indication: PRODUCT USED FOR UNKNOWN INDICATION

REACTIONS (17)
  - Myocardial infarction [Recovered/Resolved]
  - Cerebrovascular accident [Recovered/Resolved]
  - Chronic obstructive pulmonary disease [Not Recovered/Not Resolved]
  - Emphysema [Not Recovered/Not Resolved]
  - Chronic obstructive pulmonary disease [Recovered/Resolved]
  - Spinal fracture [Unknown]
  - Upper limb fracture [Unknown]
  - Dyspnoea [Unknown]
  - Vascular occlusion [Unknown]
  - Dyspnoea [Unknown]
  - Respiratory disorder [Unknown]
  - Immune system disorder [Unknown]
  - Muscle spasms [Unknown]
  - Muscle spasms [Unknown]
  - Musculoskeletal pain [Unknown]
  - Neck pain [Unknown]
  - Back pain [Unknown]
